FAERS Safety Report 24055708 (Version 1)
Quarter: 2024Q3

REPORT INFORMATION
  Report Type: Spontaneous
  Country: CN (occurrence: CN)
  Receive Date: 20240705
  Receipt Date: 20240705
  Transmission Date: 20241017
  Serious: Yes (Hospitalization, Other)
  Sender: BAYER
  Company Number: CN-BAYER-2024A096699

PATIENT
  Age: 71 Year
  Sex: Male
  Weight: 65 kg

DRUGS (2)
  1. ULTRAVIST [Suspect]
     Active Substance: IOPROMIDE
     Indication: Arterial stent insertion
     Dosage: 153.78 G, ONCE
     Route: 013
     Dates: start: 20240614, end: 20240614
  2. ULTRAVIST [Suspect]
     Active Substance: IOPROMIDE
     Indication: Carotid artery stent insertion

REACTIONS (5)
  - Cerebral infarction [Recovering/Resolving]
  - Hemiparesis [Recovering/Resolving]
  - Brain oedema [None]
  - Binocular eye movement disorder [None]
  - Hyperreflexia [None]

NARRATIVE: CASE EVENT DATE: 20240614
